FAERS Safety Report 22223133 (Version 2)
Quarter: 2023Q2

REPORT INFORMATION
  Report Type: Spontaneous
  Country: GB (occurrence: GB)
  Receive Date: 20230418
  Receipt Date: 20230420
  Transmission Date: 20230722
  Serious: Yes (Death, Other)
  Sender: FDA-Public Use
  Company Number: GB-PFIZER INC-202300157001

PATIENT
  Age: 75 Year
  Sex: Female
  Weight: 55.792 kg

DRUGS (4)
  1. HALCION [Suspect]
     Active Substance: TRIAZOLAM
     Indication: Depression
     Dosage: 0.5 MG (AT NIGHT)
     Route: 048
  2. TEMAZEPAM [Concomitant]
     Active Substance: TEMAZEPAM
     Indication: Schizophrenia
     Dosage: HIGH DOSE
  3. HALOPERIDOL [Concomitant]
     Active Substance: HALOPERIDOL
     Indication: Schizophrenia
     Dosage: UNK, MONTHLY
  4. ORPHENADRINE [Concomitant]
     Active Substance: ORPHENADRINE
     Dosage: 50 MG, 2X/DAY

REACTIONS (3)
  - Completed suicide [Fatal]
  - Toxicity to various agents [Fatal]
  - Intentional overdose [Fatal]

NARRATIVE: CASE EVENT DATE: 19870503
